FAERS Safety Report 5455002-3 (Version None)
Quarter: 2007Q3

REPORT INFORMATION
  Report Type: 
  Country: None (occurrence: None)
  Receive Date: 20070913
  Receipt Date: 20070907
  Transmission Date: 20080115
  Serious: Yes (Death)
  Sender: FDA-Public Use
  Company Number: E2020-01566-SPO-JP

PATIENT
  Age: 69 Year
  Sex: Male

DRUGS (2)
  1. ARICEPT [Suspect]
     Indication: DEMENTIA ALZHEIMER'S TYPE
     Dosage: 3 MG, 1 IN 1 D, ORAL, 5 MG, 1 IN 1 D, ORAL
     Route: 048
     Dates: start: 20070511, end: 20070524
  2. ARICEPT [Suspect]
     Indication: DEMENTIA ALZHEIMER'S TYPE
     Dosage: 3 MG, 1 IN 1 D, ORAL, 5 MG, 1 IN 1 D, ORAL
     Route: 048
     Dates: start: 20070525, end: 20070822

REACTIONS (7)
  - AGGRESSION [None]
  - CEREBRAL HAEMORRHAGE [None]
  - HEAT STROKE [None]
  - SENSORY DISTURBANCE [None]
  - SUDDEN DEATH [None]
  - URINARY INCONTINENCE [None]
  - VERBAL ABUSE [None]
